FAERS Safety Report 4374037-5 (Version None)
Quarter: 2004Q2

REPORT INFORMATION
  Report Type: 
  Country: None (occurrence: None)
  Receive Date: 20040607
  Receipt Date: 20040526
  Transmission Date: 20050107
  Serious: Yes (Other)
  Sender: FDA-Public Use
  Company Number: US-BRISTOL-MYERS SQUIBB COMPANY-12598769

PATIENT

DRUGS (2)
  1. TAXOL [Suspect]
  2. PARAPLATIN [Suspect]

REACTIONS (1)
  - PLEURISY [None]
